FAERS Safety Report 5282573-2 (Version None)
Quarter: 2007Q1

REPORT INFORMATION
  Report Type: 
  Country: None (occurrence: None)
  Receive Date: 20070326
  Receipt Date: 20070313
  Transmission Date: 20070707
  Serious: Yes (Other)
  Sender: FDA-Public Use
  Company Number: 2006BI018689

PATIENT
  Age: 49 Year
  Sex: Female

DRUGS (3)
  1. AVONEX [Suspect]
     Indication: MULTIPLE SCLEROSIS
     Dosage: 30 UG;QW;IM
     Route: 030
     Dates: start: 20060209
  2. CALCIUM WITH VITAMIN D [Concomitant]
  3. NAPROXEN [Concomitant]

REACTIONS (2)
  - BLOOD PRESSURE INCREASED [None]
  - INTRACRANIAL ANEURYSM [None]
